FAERS Safety Report 5868935-0 (Version None)
Quarter: 2008Q3

REPORT INFORMATION
  Report Type: 
  Country: None (occurrence: None)
  Receive Date: 20080903
  Receipt Date: 20080826
  Transmission Date: 20090109
  Serious: Yes (Hospitalization)
  Sender: FDA-Public Use
  Company Number: CA-MERCK-0808CAN00110

PATIENT
  Age: 76 Year
  Sex: Male
  Weight: 124 kg

DRUGS (7)
  1. COZAAR [Suspect]
     Indication: ESSENTIAL HYPERTENSION
     Route: 048
     Dates: start: 20080806, end: 20080819
  2. AMLODIPINE BESYLATE [Concomitant]
     Indication: HYPERTENSION
     Route: 065
     Dates: start: 20080609, end: 20080806
  3. FERROUS GLUCONATE [Concomitant]
     Indication: ANAEMIA
     Route: 065
     Dates: start: 20020101
  4. ESOMEPRAZOLE MAGNESIUM [Concomitant]
     Indication: GASTROOESOPHAGEAL REFLUX DISEASE
     Route: 065
     Dates: start: 20030101
  5. ROSUVASTATIN CALCIUM [Concomitant]
     Indication: HYPERLIPIDAEMIA
     Route: 065
     Dates: start: 20040101
  6. ASPIRIN [Concomitant]
     Indication: PROPHYLAXIS
     Route: 065
  7. LOPERAMIDE HYDROCHLORIDE [Concomitant]
     Indication: DIARRHOEA
     Route: 065
     Dates: start: 20080101

REACTIONS (2)
  - GASTROENTERITIS [None]
  - RENAL FAILURE ACUTE [None]
